FAERS Safety Report 8978031 (Version 4)
Quarter: 2013Q1

REPORT INFORMATION
  Report Type: Spontaneous
  Country: US (occurrence: US)
  Receive Date: 20121220
  Receipt Date: 20130208
  Transmission Date: 20140127
  Serious: Yes (Hospitalization, Other)
  Sender: FDA-Public Use
  Company Number: US-PFIZER INC-2012316583

PATIENT
  Sex: Female

DRUGS (2)
  1. DETROL LA [Suspect]
     Dosage: UNK, 1X/DAY
  2. PROTONIX [Suspect]
     Dosage: UNK

REACTIONS (7)
  - Respiratory disorder [Unknown]
  - Dyspnoea [Unknown]
  - Drug dose omission [Unknown]
  - Pollakiuria [Unknown]
  - Urinary incontinence [Unknown]
  - Bladder disorder [Unknown]
  - Malaise [Unknown]
